FAERS Safety Report 4742507-3 (Version None)
Quarter: 2005Q3

REPORT INFORMATION
  Report Type: 
  Country: None (occurrence: None)
  Receive Date: 20050808
  Receipt Date: 20050725
  Transmission Date: 20060218
  Serious: Yes (Death, Other)
  Sender: FDA-Public Use
  Company Number: US-2005-014739

PATIENT
  Age: 63 Year
  Sex: Male

DRUGS (2)
  1. FLUDARA [Suspect]
     Indication: CHRONIC LYMPHOCYTIC LEUKAEMIA
     Dosage: 25 MG/M2, CYCLE 5D Q28D, INTRAVENOUS
     Route: 042
     Dates: start: 19970401, end: 19971201
  2. FLUDARA [Suspect]
     Indication: CHRONIC LYMPHOCYTIC LEUKAEMIA
     Dosage: 25 MG/M2, CYCLE 5D Q28D, INTRAVENOUS
     Route: 042
     Dates: start: 19990101, end: 19991001

REACTIONS (5)
  - BASAL CELL CARCINOMA [None]
  - FUNGAL INFECTION [None]
  - INFECTION [None]
  - LYMPHOPENIA [None]
  - SEPSIS [None]
